FAERS Safety Report 4784378-5 (Version None)
Quarter: 2005Q3

REPORT INFORMATION
  Report Type: 
  Country: None (occurrence: None)
  Receive Date: 20050929
  Receipt Date: 20050929
  Transmission Date: 20060218
  Serious: Yes (Death, Other)
  Sender: FDA-Public Use
  Company Number: None

PATIENT
  Sex: Female
  Weight: 2.268 kg

DRUGS (2)
  1. PAXIL [Suspect]
     Indication: DEPRESSION
     Dosage: 20MG DAILY PO
     Route: 048
     Dates: start: 20010101, end: 20010713
  2. PRENATAL VITAMINS [Concomitant]

REACTIONS (4)
  - DRUG EXPOSURE DURING PREGNANCY [None]
  - PLACENTAL DISORDER [None]
  - SMALL FOR DATES BABY [None]
  - STILLBIRTH [None]
